FAERS Safety Report 8556091-X (Version None)
Quarter: 2012Q3

REPORT INFORMATION
  Report Type: 
  Country: None (occurrence: None)
  Receive Date: 20120801
  Receipt Date: 20101123
  Transmission Date: 20120928
  Serious: Yes (Hospitalization, Other)
  Sender: FDA-Public Use
  Company Number: US-BAYER-201034016NA

PATIENT
  Age: 27 Year
  Sex: Female
  Weight: 90.703 kg

DRUGS (6)
  1. YASMIN [Suspect]
     Indication: VAGINAL HAEMORRHAGE
     Route: 048
     Dates: start: 19980101, end: 20060101
  2. DROSPIRENONE AND ETHINYL ESTRADIOL [Suspect]
     Indication: VAGINAL HAEMORRHAGE
     Dosage: UNK
     Dates: start: 19980101, end: 20060101
  3. TRAMADOL HYDROCHLORIDE [Concomitant]
     Indication: PRODUCT USED FOR UNKNOWN INDICATION
     Dosage: UNK
     Dates: start: 20060820
  4. METFORMIN HYDROCHLORIDE [Concomitant]
     Indication: PRODUCT USED FOR UNKNOWN INDICATION
  5. OXYCODONE AND ACETAMINOPHEN [Concomitant]
     Indication: PRODUCT USED FOR UNKNOWN INDICATION
     Dosage: UNK
     Dates: start: 20060820
  6. YAZ [Suspect]
     Indication: VAGINAL HAEMORRHAGE
     Route: 048
     Dates: start: 20060501, end: 20080815

REACTIONS (7)
  - WEIGHT DECREASED [None]
  - CHOLELITHIASIS [None]
  - ABDOMINAL PAIN [None]
  - BILIARY COLIC [None]
  - PAIN [None]
  - VOMITING [None]
  - NAUSEA [None]
